FAERS Safety Report 25012698 (Version 2)
Quarter: 2025Q1

REPORT INFORMATION
  Report Type: Spontaneous
  Country: SI (occurrence: SI)
  Receive Date: 20250226
  Receipt Date: 20250331
  Transmission Date: 20250409
  Serious: Yes (Life-Threatening, Other)
  Sender: CSL BEHRING
  Company Number: None

PATIENT
  Age: 50 Year
  Sex: Male
  Weight: 118 kg

DRUGS (13)
  1. PRIVIGEN [Suspect]
     Active Substance: HUMAN IMMUNOGLOBULIN G
     Indication: Immunomodulatory therapy
     Dosage: 30 G, QD (STRENGHT: 100 MG/ML )
     Route: 042
  2. NaCl b.braun [Concomitant]
     Route: 042
     Dates: start: 20250115, end: 20250120
  3. KINERET [Concomitant]
     Active Substance: ANAKINRA
     Route: 042
     Dates: start: 20250115, end: 20250120
  4. SOLU-MEDROL [Concomitant]
     Active Substance: METHYLPREDNISOLONE SODIUM SUCCINATE
     Route: 042
     Dates: start: 20250114, end: 20250120
  5. ACYCLOVIR [Concomitant]
     Active Substance: ACYCLOVIR
  6. ACYCLOVIR [Concomitant]
     Active Substance: ACYCLOVIR
  7. LINEZOLID [Concomitant]
     Active Substance: LINEZOLID
  8. LINEZOLID [Concomitant]
     Active Substance: LINEZOLID
  9. CEFEPIME [Concomitant]
     Active Substance: CEFEPIME HYDROCHLORIDE
  10. CEFEPIME [Concomitant]
     Active Substance: CEFEPIME HYDROCHLORIDE
  11. POSACONAZOLE [Concomitant]
     Active Substance: POSACONAZOLE
  12. POSACONAZOLE [Concomitant]
     Active Substance: POSACONAZOLE
  13. SODIUM CHLORIDE [Concomitant]
     Active Substance: SODIUM CHLORIDE
     Route: 042
     Dates: start: 20250115, end: 20250120

REACTIONS (1)
  - Torsade de pointes [Recovered/Resolved]
